FAERS Safety Report 23563339 (Version 3)
Quarter: 2024Q3

REPORT INFORMATION
  Report Type: Spontaneous
  Country: US (occurrence: US)
  Receive Date: 20240226
  Receipt Date: 20240816
  Transmission Date: 20241016
  Serious: No
  Sender: SANOFI AVENTIS
  Company Number: US-SA-SAC20240221000411

PATIENT
  Age: 51 Year
  Sex: Female
  Weight: 79.37 kg

DRUGS (17)
  1. DUPIXENT [Suspect]
     Active Substance: DUPILUMAB
     Indication: Dermatitis atopic
     Dosage: 300 MG, QOW
     Route: 058
     Dates: start: 2020
  2. DUPIXENT [Suspect]
     Active Substance: DUPILUMAB
     Dosage: 300 MG, 1X
     Route: 058
     Dates: start: 20240803, end: 20240803
  3. VITAMINS NOS [Concomitant]
     Active Substance: VITAMINS
  4. VITAMINS NOS [Concomitant]
     Active Substance: VITAMINS
  5. VITAMIN D3 [Concomitant]
     Active Substance: CHOLECALCIFEROL
  6. VITAMIN D3 [Concomitant]
     Active Substance: CHOLECALCIFEROL
  7. EPINEPHRINE [Concomitant]
     Active Substance: EPINEPHRINE
  8. EPINEPHRINE [Concomitant]
     Active Substance: EPINEPHRINE
  9. BENADRYL ALLERGY [Concomitant]
     Active Substance: DIPHENHYDRAMINE HYDROCHLORIDE
  10. LEVOTHYROXINE SODIUM [Concomitant]
     Active Substance: LEVOTHYROXINE SODIUM
  11. LEVOTHYROXINE SODIUM [Concomitant]
     Active Substance: LEVOTHYROXINE SODIUM
  12. CONTRAVE [Concomitant]
     Active Substance: BUPROPION HYDROCHLORIDE\NALTREXONE HYDROCHLORIDE
  13. FENOFIBRATE [Concomitant]
     Active Substance: FENOFIBRATE
  14. FENOFIBRATE [Concomitant]
     Active Substance: FENOFIBRATE
  15. PREDNISONE [Concomitant]
     Active Substance: PREDNISONE
     Indication: Rash
  16. LISINOPRIL [Concomitant]
     Active Substance: LISINOPRIL
  17. LISINOPRIL [Concomitant]
     Active Substance: LISINOPRIL

REACTIONS (2)
  - Nerve compression [Unknown]
  - Rash pruritic [Not Recovered/Not Resolved]
